FAERS Safety Report 8571496-9 (Version None)
Quarter: 2012Q3

REPORT INFORMATION
  Report Type: 
  Country: None (occurrence: None)
  Receive Date: 20120806
  Receipt Date: 20120727
  Transmission Date: 20120928
  Serious: Yes (Other)
  Sender: FDA-Public Use
  Company Number: CA-JNJFOC-20120714586

PATIENT
  Sex: Male
  Weight: 86.3 kg

DRUGS (8)
  1. RABEPRAZOLE SODIUM [Concomitant]
     Route: 065
  2. REMICADE [Suspect]
     Indication: RHEUMATOID ARTHRITIS
     Route: 042
     Dates: start: 20070101
  3. MORPHINE SULFATE [Concomitant]
     Route: 065
  4. CALCIUM [Concomitant]
     Route: 065
  5. METHOTREXATE [Concomitant]
     Route: 065
  6. TINZAPARIN [Concomitant]
     Route: 065
  7. VITAMIN D [Concomitant]
     Route: 065
  8. FOLIC ACID [Concomitant]
     Route: 065

REACTIONS (1)
  - RIB FRACTURE [None]
